FAERS Safety Report 12594013 (Version 2)
Quarter: 2016Q3

REPORT INFORMATION
  Report Type: Report from Study
  Country: US (occurrence: US)
  Receive Date: 20160726
  Receipt Date: 20160805
  Transmission Date: 20161109
  Serious: Yes (Hospitalization, Other)
  Sender: FDA-Public Use
  Company Number: US-BAYER-2016-018535

PATIENT
  Age: 82 Year
  Sex: Female
  Weight: 78.91 kg

DRUGS (2)
  1. ADEMPAS [Suspect]
     Active Substance: RIOCIGUAT
     Indication: PULMONARY ARTERIAL HYPERTENSION
     Dosage: 2.5 MG, TID
     Route: 048
  2. ADEMPAS [Suspect]
     Active Substance: RIOCIGUAT
     Indication: PULMONARY ARTERIAL HYPERTENSION
     Dosage: 0.5 MG, TID
     Route: 048
     Dates: start: 20160113

REACTIONS (10)
  - Condition aggravated [Unknown]
  - Herpes zoster [None]
  - Bronchitis [Unknown]
  - Cough [None]
  - Nasopharyngitis [None]
  - Emotional disorder [None]
  - Mobility decreased [Unknown]
  - Mobility decreased [None]
  - Dyspnoea [Unknown]
  - Exercise tolerance decreased [None]
